FAERS Safety Report 4901922-5 (Version None)
Quarter: 2006Q1

REPORT INFORMATION
  Report Type: 
  Country: None (occurrence: None)
  Receive Date: 20060206
  Receipt Date: 20060126
  Transmission Date: 20060701
  Serious: Yes (Hospitalization)
  Sender: FDA-Public Use
  Company Number: PHHO2006US01738

PATIENT
  Age: 68 Year
  Sex: Male

DRUGS (25)
  1. CYCLOSPORINE [Suspect]
     Indication: RENAL TRANSPLANT
     Dosage: 100 MG, BID
     Route: 048
     Dates: start: 20040812, end: 20060111
  2. CYCLOSPORINE [Suspect]
     Dosage: 25 MG, BID
     Route: 048
     Dates: start: 20060112, end: 20060112
  3. CYCLOSPORINE [Suspect]
     Dosage: 75 MG, BID
     Route: 048
     Dates: start: 20060113
  4. MYCOPHENOLATE MOFETIL [Concomitant]
     Indication: RENAL TRANSPLANT
     Dosage: 1000 MG, BID
     Route: 048
     Dates: start: 20040812
  5. PREDNISONE [Concomitant]
     Indication: RENAL TRANSPLANT
     Dosage: 10 MG, QD
     Route: 048
     Dates: start: 20040812
  6. SEREVENT [Concomitant]
  7. AZMACORT [Concomitant]
  8. PROTONIX [Concomitant]
     Dates: start: 20040813
  9. SEPTRA DS [Concomitant]
     Dates: start: 20040814
  10. LASIX [Concomitant]
     Dates: start: 20040814
  11. MYCELEX [Concomitant]
     Dates: start: 20040815
  12. NEUPOGEN [Concomitant]
     Dates: start: 20041217
  13. FLOMAX [Concomitant]
     Dates: start: 20041218
  14. CIPRO [Concomitant]
     Dates: start: 20041217
  15. DIOVAN [Concomitant]
     Dates: start: 20041218
  16. MUCOMYST [Concomitant]
     Dates: start: 20041217
  17. LOPRESSOR [Concomitant]
     Dates: start: 20000615
  18. LIPITOR [Concomitant]
     Dates: start: 20041218
  19. COUMADIN [Concomitant]
     Dates: start: 20041224
  20. ALBUTEROL [Concomitant]
  21. BACTRIM [Concomitant]
     Dates: start: 20040615
  22. PREVACID [Concomitant]
     Dates: start: 20040615
  23. ADVAIR DISKUS 100/50 [Concomitant]
     Dates: start: 20000615
  24. IPRATROPIUM BROMIDE [Concomitant]
     Dates: start: 20051225, end: 20060112
  25. VORICONAZOLE [Suspect]
     Dates: start: 20051225, end: 20060112

REACTIONS (3)
  - DRUG INTERACTION [None]
  - HYPERKALAEMIA [None]
  - THERAPEUTIC AGENT TOXICITY [None]
